FAERS Safety Report 20130561 (Version 1)
Quarter: 2021Q4

REPORT INFORMATION
  Report Type: Report from Study
  Country: US (occurrence: US)
  Receive Date: 20211130
  Receipt Date: 20211130
  Transmission Date: 20220303
  Serious: Yes (Other)
  Sender: FDA-Public Use
  Company Number: US-MYLANLABS-2021M1088764

PATIENT
  Age: 20 Year
  Sex: Male

DRUGS (3)
  1. CABERGOLINE [Suspect]
     Active Substance: CABERGOLINE
     Indication: Prolactin-producing pituitary tumour
     Dosage: 6 MILLIGRAM, QW
     Route: 065
     Dates: start: 2016
  2. EVEROLIMUS [Suspect]
     Active Substance: EVEROLIMUS
     Indication: Prolactin-producing pituitary tumour
     Dosage: UNK
     Route: 065
  3. LAPATINIB [Concomitant]
     Active Substance: LAPATINIB
     Indication: Prolactin-producing pituitary tumour
     Dosage: 5 DOSAGE FORM, QD,A SINGLE ORAL DOSE OF FIVE 250MG TABLETS OF LAPATINIB ONCE DAILY (1250 MG/DAY).
     Route: 048

REACTIONS (2)
  - Drug ineffective [Unknown]
  - Off label use [Unknown]

NARRATIVE: CASE EVENT DATE: 20160101
